FAERS Safety Report 19078356 (Version 1)
Quarter: 2021Q1

REPORT INFORMATION
  Report Type: Report from Study
  Country: FI (occurrence: FI)
  Receive Date: 20210331
  Receipt Date: 20210331
  Transmission Date: 20210420
  Serious: Yes (Hospitalization, Other)
  Sender: FDA-Public Use
  Company Number: FI-MYLANLABS-2018M1007666

PATIENT
  Sex: Male

DRUGS (5)
  1. ANTABUS [Concomitant]
     Active Substance: DISULFIRAM
     Indication: PRODUCT USED FOR UNKNOWN INDICATION
     Dosage: 200 MG, QD
  2. SCOPODERM [Concomitant]
     Active Substance: SCOPOLAMINE
     Indication: PROPHYLAXIS
     Dosage: UNK
  3. LEPONEX [Suspect]
     Active Substance: CLOZAPINE
     Indication: SCHIZOPHRENIA
     Dosage: UNK UNK, QD
     Dates: start: 20121009, end: 20130829
  4. LEPONEX [Suspect]
     Active Substance: CLOZAPINE
     Dosage: 450 MILLIGRAM, QD (50 MG MORNING AND 400 MG EVENING)
     Dates: start: 201802
  5. ABSENOR [Concomitant]
     Indication: PRODUCT USED FOR UNKNOWN INDICATION
     Dosage: 600 MG, BID

REACTIONS (5)
  - Hallucination, auditory [Recovered/Resolved]
  - Schizophrenia [Recovered/Resolved]
  - Neutropenia [Recovered/Resolved]
  - Withdrawal syndrome [Unknown]
  - Anxiety [Unknown]

NARRATIVE: CASE EVENT DATE: 2013
